FAERS Safety Report 5419482-1 (Version None)
Quarter: 2007Q3

REPORT INFORMATION
  Report Type: 
  Country: None (occurrence: None)
  Receive Date: 20070820
  Receipt Date: 20070813
  Transmission Date: 20080115
  Serious: Yes (Other)
  Sender: FDA-Public Use
  Company Number: US-GENENTECH-239130

PATIENT
  Sex: Female

DRUGS (9)
  1. LUCENTIS [Suspect]
     Indication: MACULAR DEGENERATION
     Dosage: UNK, UNK
     Dates: start: 20061101
  2. AVASTIN [Suspect]
     Indication: DRUG USE FOR UNKNOWN INDICATION
  3. GLYBURIDE [Concomitant]
     Indication: DRUG USE FOR UNKNOWN INDICATION
  4. OCUVITE [Concomitant]
     Indication: DRUG USE FOR UNKNOWN INDICATION
  5. METFORMIN HCL [Concomitant]
     Indication: DRUG USE FOR UNKNOWN INDICATION
  6. ZOCOR [Concomitant]
     Indication: DRUG USE FOR UNKNOWN INDICATION
  7. GINKO (UNK INGREDIENTS) [Concomitant]
     Indication: DRUG USE FOR UNKNOWN INDICATION
  8. VITAMIN B COMPLEX CAP [Concomitant]
     Indication: DRUG USE FOR UNKNOWN INDICATION
  9. COZAAR [Concomitant]
     Indication: DRUG USE FOR UNKNOWN INDICATION

REACTIONS (4)
  - CORNEAL ABRASION [None]
  - EYE PAIN [None]
  - IATROGENIC INJURY [None]
  - NERVE INJURY [None]
